FAERS Safety Report 23813433 (Version 1)
Quarter: 2024Q2

REPORT INFORMATION
  Report Type: Spontaneous
  Country: DK (occurrence: DK)
  Receive Date: 20240503
  Receipt Date: 20240503
  Transmission Date: 20240716
  Serious: Yes (Disabling)
  Sender: FDA-Public Use
  Company Number: None

PATIENT
  Age: 4 Decade
  Sex: Male

DRUGS (13)
  1. ETOPOSIDE [Suspect]
     Active Substance: ETOPOSIDE
     Indication: Castleman^s disease
     Dosage: DOSAGE: UNKNOWN STRENGTH: UNKNOWN.START DATE: SPRING2019. GIVEN AS PART OF BEAM PROTOCOL
     Dates: start: 2019
  2. CYTARABINE [Suspect]
     Active Substance: CYTARABINE
     Indication: Castleman^s disease
     Dosage: DOSAGE: UNKNOWN STRENGTH: UNKNOWN START DATE: SPRING2019. GIVEN AS PART OF BEAM PROTOCOL
     Dates: start: 2019
  3. DOXORUBICIN [Suspect]
     Active Substance: DOXORUBICIN
     Indication: Castleman^s disease
     Dosage: DOSAGE:UNKNOWNSTRENGTH:UNKNOWN GIVEN AS PART OF R-CHOEP PROTOCOL. 6.TREATMENT 27FEB19
     Dates: start: 20181115, end: 20190227
  4. GEMCITABINE [Suspect]
     Active Substance: GEMCITABINE
     Indication: Castleman^s disease
     Dosage: DOSAGE:UNKNOWN STRENGTH:UNKNOWN START: AFTER 10SEP. 2.TREATMENT 03OKT. STOP BEFORE15NOV
     Dates: start: 201809, end: 2018
  5. CARMUSTINE [Suspect]
     Active Substance: CARMUSTINE
     Indication: Castleman^s disease
     Dosage: POWDER AND SOLVENT FOR CONCENTRATE FOR SOLUTION FOR INFUSION
     Dates: start: 2019
  6. ALKERAN [Suspect]
     Active Substance: MELPHALAN
     Indication: Castleman^s disease
     Dosage: DOSAGE: UNKNOWN STRENGTH: UNKNOWN.   START DATE: SPRING2019. GIVEN AS PART OF BEAM PROTOCOL
     Dates: start: 2019
  7. CYCLOPHOSPHAMIDE [Suspect]
     Active Substance: CYCLOPHOSPHAMIDE
     Indication: Castleman^s disease
     Dosage: DOSAGE:UNKNOWNSTRENGTH:UNKNOWNGIVEN AS PART OF R-CHOEP PROTOCOL. 6.TREATMENT 27FEB19
     Dates: start: 20181115, end: 20190227
  8. RITUXIMAB [Suspect]
     Active Substance: RITUXIMAB
     Indication: Castleman^s disease
     Dosage: DOSAGE: UNKNOWN STRENGTH: UNKNOWN GIVEN AS PART OF R-CHOEP PROTOCOL. 6.TREATMENT 27FEB2019
     Dates: start: 20181115, end: 20190227
  9. ONCOVIN [Suspect]
     Active Substance: VINCRISTINE SULFATE
     Indication: Castleman^s disease
     Dosage: DOSAGE: UNKNOWN STRENGTH: 1MG/MLGIVEN AS PART OF R-CHOEP PROTOCOL. 6.TREATMENT 27FEB2019
     Dates: start: 20181115, end: 20190227
  10. PREDNISOLONE [Suspect]
     Active Substance: PREDNISOLONE
     Indication: Castleman^s disease
     Dosage: DOSAGE: UNKNOWN STRENGTH: UNKNOWN GIVEN AS PART OF R-CHOEP PROTOCOL. 6. TREATMENT 27FEB2019
     Dates: start: 20181115, end: 20190227
  11. ETOPOSIDE [Suspect]
     Active Substance: ETOPOSIDE
     Indication: Castleman^s disease
     Dosage: DOSAGE: UNKNOWN STRENGTH: UNKNOWN. GIVEN AS PART OF R-CHOEP PROTOCOL.6.TREATMENT 27FEB2019
     Dates: start: 20181115, end: 20190227
  12. RITUXIMAB [Suspect]
     Active Substance: RITUXIMAB
     Indication: Castleman^s disease
     Dosage: DOSAGE:UNKNOWNSTRENGTH:UNKNOWN PART OF R-GEMCITABIN.START AFTER10SEP.2.TREAT.03OCT.STOP BEFORE15NOV
     Dates: start: 201809, end: 2018
  13. RITUXIMAB [Suspect]
     Active Substance: RITUXIMAB
     Indication: Castleman^s disease
     Dosage: DOSAGE: UNKNOWN STRENGTH: UNKNOWN STOP DATE: BETWEEN JUN2018 - SEP2018
     Dates: start: 20180618, end: 2018

REACTIONS (2)
  - Infertility [Not Recovered/Not Resolved]
  - Azoospermia [Not Recovered/Not Resolved]

NARRATIVE: CASE EVENT DATE: 20190318
